FAERS Safety Report 5334397-5 (Version None)
Quarter: 2007Q2

REPORT INFORMATION
  Report Type: 
  Country: None (occurrence: None)
  Receive Date: 20070525
  Receipt Date: 20070518
  Transmission Date: 20071010
  Serious: Yes (Other)
  Sender: FDA-Public Use
  Company Number: PHEH2007US05134

PATIENT
  Age: 67 Year
  Sex: Female

DRUGS (7)
  1. ZELNORM [Suspect]
     Indication: IRRITABLE BOWEL SYNDROME
     Dosage: 6 MG, BID
     Route: 048
     Dates: start: 20061101, end: 20070405
  2. LOPRESSOR [Concomitant]
     Dosage: 50MG AM, 25MG PM
  3. LISINOPRIL [Concomitant]
     Dosage: 5 MG, QD
  4. ASPIRIN [Concomitant]
     Dosage: UNK, QD
  5. PLAVIX [Concomitant]
     Dosage: 75 MG, QD
  6. CRESTOR [Concomitant]
     Indication: HYPERCHOLESTEROLAEMIA
     Dosage: 5 MG, QD
  7. PROTONIX [Concomitant]
     Dosage: 40 MG, QD

REACTIONS (2)
  - CHEST PAIN [None]
  - MYOCARDIAL INFARCTION [None]
